FAERS Safety Report 6003697-8 (Version None)
Quarter: 2008Q4

REPORT INFORMATION
  Report Type: 
  Country: None (occurrence: None)
  Receive Date: 20081212
  Receipt Date: 20081212
  Transmission Date: 20090506
  Serious: Yes (Death)
  Sender: FDA-Public Use
  Company Number: None

PATIENT
  Sex: Male
  Weight: 89 kg

DRUGS (3)
  1. LOVASTATIN [Suspect]
     Indication: CHEMOTHERAPY
     Dosage: 320MG QDX 7 PO
     Route: 048
     Dates: start: 20081113, end: 20081121
  2. ARA-C [Suspect]
     Indication: ACUTE MYELOID LEUKAEMIA
     Dosage: 6200MG Q12HOURS IV DRIP
     Route: 041
     Dates: start: 20081117, end: 20081121
  3. ARA-C [Suspect]
     Indication: CHEMOTHERAPY
     Dosage: 6200MG Q12HOURS IV DRIP
     Route: 041
     Dates: start: 20081117, end: 20081121

REACTIONS (2)
  - INFECTION [None]
  - PANCYTOPENIA [None]
